FAERS Safety Report 9234637 (Version 1)
Quarter: 2013Q2

REPORT INFORMATION
  Report Type: Spontaneous
  Country: US (occurrence: US)
  Receive Date: 20130416
  Receipt Date: 20130416
  Transmission Date: 20140414
  Serious: No
  Sender: FDA-Public Use
  Company Number: US-ASTRAZENECA-2013SE21096

PATIENT
  Age: 71 Year
  Sex: Female
  Weight: 61.2 kg

DRUGS (7)
  1. ATACAND [Suspect]
     Indication: BLOOD PRESSURE INCREASED
     Route: 048
     Dates: start: 201301
  2. ATACAND [Suspect]
     Indication: BLOOD PRESSURE INCREASED
     Route: 048
  3. CELEBREX [Concomitant]
  4. FOSAMAX [Concomitant]
  5. ASTALYN [Concomitant]
  6. NASONEX [Concomitant]
  7. CLARINEX [Concomitant]

REACTIONS (2)
  - Dizziness [Recovered/Resolved]
  - Intentional drug misuse [Unknown]
